FAERS Safety Report 24360837 (Version 2)
Quarter: 2024Q4

REPORT INFORMATION
  Report Type: Spontaneous
  Country: FR (occurrence: FR)
  Receive Date: 20240925
  Receipt Date: 20241004
  Transmission Date: 20250115
  Serious: Yes (Hospitalization, Other)
  Sender: AUROBINDO
  Company Number: FR-PFIZER INC-2011110387

PATIENT
  Age: 61 Year
  Sex: Female

DRUGS (17)
  1. MIANSERIN [Suspect]
     Active Substance: MIANSERIN
     Indication: Product used for unknown indication
     Dosage: 1 DOSAGE FORM, ONCE A DAY(1 UNIT DAILY REGIMEN DOSE UNIT: DOSAGE FORM)
     Route: 048
  2. TRAMADOL [Interacting]
     Active Substance: TRAMADOL
     Indication: Product used for unknown indication
     Dosage: 1 DOSAGE FORM, ONCE A DAY(1 UNIT DAILY REGIMEN DOSE UNIT: DOSAGE FORM)
     Route: 048
  3. ZOLPIDEM [Suspect]
     Active Substance: ZOLPIDEM TARTRATE
     Indication: Product used for unknown indication
     Dosage: 2 DOSAGE FORM, ONCE A DAY(2 TABLETS AT NIGHT REGIMEN DOSE UNIT: DOSAGE FORM)
     Route: 048
  4. ATARAX [Suspect]
     Active Substance: HYDROXYZINE HYDROCHLORIDE
     Indication: Product used for unknown indication
     Dosage: 1 DOSAGE FORM, ONCE A DAY(1 UNIT DAILY REGIMEN DOSE UNIT: DOSAGE FORM)
     Route: 048
  5. WARFARIN SODIUM [Interacting]
     Active Substance: WARFARIN SODIUM
     Indication: Product used for unknown indication
     Dosage: UNK(DEPENDING ON INR)
     Route: 048
     Dates: start: 20110414
  6. WARFARIN SODIUM [Interacting]
     Active Substance: WARFARIN SODIUM
     Dosage: UNK(DEPENDING ON INR)
     Route: 048
     Dates: end: 20110410
  7. FLOLAN [Suspect]
     Active Substance: EPOPROSTENOL SODIUM
     Indication: Product used for unknown indication
     Dosage: UNK(8 MG/KG/MIN)
     Route: 042
     Dates: start: 20090916
  8. FLOLAN [Suspect]
     Active Substance: EPOPROSTENOL SODIUM
     Dosage: UNK(7.5 MG/KG/MIN)
     Route: 042
  9. ESOMEPRAZOLE [Suspect]
     Active Substance: ESOMEPRAZOLE
     Indication: Product used for unknown indication
     Dosage: 1 DOSAGE FORM, ONCE A DAY(1 UNIT DAILY REGIMEN DOSE UNIT: DOSAGE FORM)
     Route: 048
  10. LEVOTHYROXINE [Suspect]
     Active Substance: LEVOTHYROXINE
     Indication: Product used for unknown indication
     Dosage: 50 MICROGRAM, ONCE A DAY(50 UG, 1X/DAY REGIMEN DOSE UNIT: MICROGRAM)
     Route: 048
  11. FUROSEMIDE [Suspect]
     Active Substance: FUROSEMIDE
     Indication: Product used for unknown indication
     Dosage: 2 DOSAGE FORM, ONCE A DAY(2 UNITS DAILY REGIMEN DOSE UNIT: DOSAGE FORM)
     Route: 048
  12. LORAZEPAM [Suspect]
     Active Substance: LORAZEPAM
     Indication: Product used for unknown indication
     Dosage: 4 MILLIGRAM, ONCE A DAY(4 MG, 1X/DAY REGIMEN DOSE UNIT: MILLIGRAM)
     Route: 048
  13. REVATIO [Suspect]
     Active Substance: SILDENAFIL CITRATE
     Indication: Pulmonary hypertension
     Dosage: 3 DOSAGE FORM, ONCE A DAY(3 UNITS DAILY REGIMEN DOSE UNIT: DOSAGE FORM)
     Route: 048
  14. CYAMEMAZINE [Suspect]
     Active Substance: CYAMEMAZINE
     Indication: Product used for unknown indication
     Dosage: 16 DROP, DAILY
     Route: 048
  15. TRACLEER [Suspect]
     Active Substance: BOSENTAN
     Indication: Product used for unknown indication
     Dosage: 2 DOSAGE FORM, ONCE A DAY(2 UNITS DAILY REGIMEN DOSE UNIT: DOSAGE FORM)
     Route: 048
  16. VERAPAMIL [Suspect]
     Active Substance: VERAPAMIL HYDROCHLORIDE
     Indication: Product used for unknown indication
     Dosage: 40 MILLIGRAM, ONCE A DAY(40 MG, 1X/DAY REGIMEN DOSE UNIT: MILLIGRAM)
     Route: 048
     Dates: start: 20110412
  17. VERAPAMIL [Suspect]
     Active Substance: VERAPAMIL HYDROCHLORIDE
     Dosage: 120 MILLIGRAM, ONCE A DAY(40 MG, 3X/DAY REGIMEN DOSE UNIT: MILLIGRAM)
     Route: 048
     Dates: end: 20110411

REACTIONS (6)
  - Melaena [Unknown]
  - Rectal haemorrhage [Unknown]
  - Gastrointestinal haemorrhage [Recovering/Resolving]
  - Thrombocytopenia [Recovered/Resolved]
  - Drug interaction [Unknown]
  - Epistaxis [Unknown]

NARRATIVE: CASE EVENT DATE: 20110410
